FAERS Safety Report 22162835 (Version 2)
Quarter: 2023Q2

REPORT INFORMATION
  Report Type: Spontaneous
  Country: US (occurrence: US)
  Receive Date: 20230331
  Receipt Date: 20230510
  Transmission Date: 20230721
  Serious: Yes (Death, Hospitalization, Other)
  Sender: FDA-Public Use
  Company Number: US-009507513-2303USA010611

PATIENT
  Sex: Male
  Weight: 67 kg

DRUGS (1)
  1. ZERBAXA [Suspect]
     Active Substance: CEFTOLOZANE SULFATE\TAZOBACTAM SODIUM
     Dosage: 75 MILLIGRAM, Q8H
     Dates: start: 20230226, end: 20230311

REACTIONS (6)
  - Gun shot wound [Fatal]
  - Colostomy [Unknown]
  - Renal impairment [Unknown]
  - Lactic acidosis [Unknown]
  - Leukocytosis [Unknown]
  - Hospice care [Unknown]

NARRATIVE: CASE EVENT DATE: 20230101
